FAERS Safety Report 5472224-6 (Version None)
Quarter: 2007Q3

REPORT INFORMATION
  Report Type: 
  Country: None (occurrence: None)
  Receive Date: 20070926
  Receipt Date: 20070914
  Transmission Date: 20080115
  Serious: Yes (Other)
  Sender: FDA-Public Use
  Company Number: ALL1-2007-00811

PATIENT
  Age: 6 Year
  Sex: Male
  Weight: 22.7 kg

DRUGS (2)
  1. DAYTRANA [Suspect]
     Indication: ATTENTION DEFICIT/HYPERACTIVITY DISORDER
     Dosage: 10 MG, 1X/DAY:QD, TRANSDERMAL
     Route: 062
     Dates: start: 20070820, end: 20070907
  2. METADATE (METHYLPHENIDATE HYDROCHLORIDE) CAPSULE [Concomitant]

REACTIONS (2)
  - CONVULSION [None]
  - TIC [None]
